FAERS Safety Report 4441044-3 (Version None)
Quarter: 2004Q3

REPORT INFORMATION
  Report Type: 
  Country: None (occurrence: None)
  Receive Date: 20040902
  Receipt Date: 20040902
  Transmission Date: 20050211
  Serious: Yes (Other)
  Sender: FDA-Public Use
  Company Number: None

PATIENT
  Age: 29 Year
  Sex: Female
  Weight: 49.8957 kg

DRUGS (3)
  1. OXYCODONE HCL [Suspect]
     Indication: ADENOID CYSTIC CARCINOMA
     Dosage: 10MG  EVERY 4 HR  ORAL
     Route: 048
     Dates: start: 20040201, end: 20040910
  2. OXYCODONE HCL [Suspect]
     Indication: PAIN
     Dosage: 10MG  EVERY 4 HR  ORAL
     Route: 048
     Dates: start: 20040201, end: 20040910
  3. OXYCONTIN [Concomitant]

REACTIONS (3)
  - DRUG EFFECT DECREASED [None]
  - NAUSEA [None]
  - PHARMACEUTICAL PRODUCT COMPLAINT [None]
